FAERS Safety Report 18564021 (Version 1)
Quarter: 2020Q4

REPORT INFORMATION
  Report Type: Spontaneous
  Country: US (occurrence: US)
  Receive Date: 20201130
  Receipt Date: 20201130
  Transmission Date: 20210114
  Serious: Yes (Death)
  Sender: FDA-Public Use
  Company Number: None

PATIENT
  Age: 85 Year
  Sex: Male
  Weight: 80.06 kg

DRUGS (16)
  1. CALCIUM ACETATE. [Concomitant]
     Active Substance: CALCIUM ACETATE
  2. VIAGRA [Concomitant]
     Active Substance: SILDENAFIL CITRATE
  3. NIACIN. [Concomitant]
     Active Substance: NIACIN
  4. TYLENOL [Concomitant]
     Active Substance: ACETAMINOPHEN
  5. SYNTHROID [Concomitant]
     Active Substance: LEVOTHYROXINE SODIUM
  6. OMEGA 3 [Concomitant]
     Active Substance: OMEGA-3 FATTY ACIDS
  7. RESTASIS [Concomitant]
     Active Substance: CYCLOSPORINE
  8. VITAMIN B12 [Concomitant]
     Active Substance: CYANOCOBALAMIN
  9. VITAMIN E [Concomitant]
     Active Substance: .ALPHA.-TOCOPHEROL
  10. CAPECITABINE. [Suspect]
     Active Substance: CAPECITABINE
     Indication: APPENDIX CANCER
     Route: 048
     Dates: start: 20201010, end: 20201130
  11. XANAX [Concomitant]
     Active Substance: ALPRAZOLAM
  12. AMITIZA [Concomitant]
     Active Substance: LUBIPROSTONE
  13. CENTRUM [Concomitant]
     Active Substance: VITAMINS
  14. CAPECITABINE. [Suspect]
     Active Substance: CAPECITABINE
     Indication: METASTASIS
     Route: 048
     Dates: start: 20201010, end: 20201130
  15. OMEPRAZOLE. [Concomitant]
     Active Substance: OMEPRAZOLE
  16. VITAMIN B6 [Concomitant]
     Active Substance: PYRIDOXINE HYDROCHLORIDE

REACTIONS (1)
  - Death [None]

NARRATIVE: CASE EVENT DATE: 20201126
